FAERS Safety Report 7133350-9 (Version None)
Quarter: 2010Q4

REPORT INFORMATION
  Report Type: 
  Country: None (occurrence: None)
  Receive Date: 20101117
  Receipt Date: 20101103
  Transmission Date: 20110411
  Serious: No
  Sender: FDA-Public Use
  Company Number: 021546

PATIENT
  Sex: Male
  Weight: 68 kg

DRUGS (5)
  1. KEPPRA [Suspect]
     Indication: CONVULSION
     Dosage: (750 MG TID ORAL)
     Route: 048
  2. VENLAFAXINE [Concomitant]
  3. DIPHENHYDRAMIN [Concomitant]
  4. CITALOPRAM HYDROBROMIDE [Concomitant]
  5. LORAZEPAM [Concomitant]

REACTIONS (4)
  - CONVULSION [None]
  - MIGRAINE [None]
  - PHOTOPSIA [None]
  - SLUGGISHNESS [None]
